FAERS Safety Report 5507938-2 (Version None)
Quarter: 2007Q4

REPORT INFORMATION
  Report Type: 
  Country: None (occurrence: None)
  Receive Date: 20071106
  Receipt Date: 20071024
  Transmission Date: 20080405
  Serious: Yes (Death, Hospitalization, Other)
  Sender: FDA-Public Use
  Company Number: US-PFIZER INC-2006138026

PATIENT
  Sex: Female
  Weight: 57.6 kg

DRUGS (3)
  1. CELEBREX [Suspect]
     Indication: ARTHRITIS
     Route: 048
  2. VIOXX [Suspect]
     Indication: ARTHRITIS
     Dosage: TEXT:12.5MG AND 25MG
     Route: 048
     Dates: start: 20000523, end: 20040901
  3. PAROXETINE HCL [Concomitant]
     Indication: DEPRESSION
     Dates: start: 20040601, end: 20060101

REACTIONS (3)
  - DEPRESSION [None]
  - ISCHAEMIC STROKE [None]
  - MYOCARDIAL INFARCTION [None]
